FAERS Safety Report 24183153 (Version 1)
Quarter: 2024Q3

REPORT INFORMATION
  Report Type: Spontaneous
  Country: CA (occurrence: CA)
  Receive Date: 20240807
  Receipt Date: 20240807
  Transmission Date: 20241016
  Serious: Yes (Hospitalization)
  Sender: JOHNSON AND JOHNSON
  Company Number: CA-JNJFOC-20240805002

PATIENT
  Age: 53 Year
  Sex: Female

DRUGS (2)
  1. TYLENOL [Suspect]
     Active Substance: ACETAMINOPHEN
     Indication: Neck pain
     Route: 065
  2. TYLENOL [Suspect]
     Active Substance: ACETAMINOPHEN
     Indication: Hypoaesthesia

REACTIONS (3)
  - Toxicity to various agents [Unknown]
  - Product use issue [Unknown]
  - Nerve compression [Unknown]

NARRATIVE: CASE EVENT DATE: 20240101
